FAERS Safety Report 20536057 (Version 1)
Quarter: 2022Q1

REPORT INFORMATION
  Report Type: Report from Study
  Country: JP (occurrence: JP)
  Receive Date: 20220302
  Receipt Date: 20220302
  Transmission Date: 20220423
  Serious: Yes (Hospitalization)
  Sender: FDA-Public Use
  Company Number: JP-JNJFOC-A-CH2017-164842

PATIENT
  Age: 23 Year
  Sex: Male

DRUGS (30)
  1. EPOPROSTENOL [Suspect]
     Active Substance: EPOPROSTENOL
     Indication: Pulmonary arterial hypertension
     Dosage: 121.8 NG/KG, PER MIN
     Route: 042
     Dates: start: 20150205
  2. EPOPROSTENOL [Suspect]
     Active Substance: EPOPROSTENOL
     Dosage: 125.5 NG/KG, PER MIN
     Route: 042
     Dates: start: 20150312
  3. EPOPROSTENOL [Suspect]
     Active Substance: EPOPROSTENOL
     Dosage: 129.2 NG/KG, PER MIN
     Route: 042
     Dates: start: 20150423
  4. EPOPROSTENOL [Suspect]
     Active Substance: EPOPROSTENOL
     Dosage: 135.5 NG/KG, PER MIN
     Route: 042
     Dates: start: 20150618
  5. EPOPROSTENOL [Suspect]
     Active Substance: EPOPROSTENOL
     Dosage: 139.3 NG/KG, PER MIN
     Route: 042
     Dates: start: 20150820
  6. EPOPROSTENOL [Suspect]
     Active Substance: EPOPROSTENOL
     Dosage: 143.0 NG/KG, PER MIN
     Route: 042
     Dates: start: 20151015
  7. EPOPROSTENOL [Suspect]
     Active Substance: EPOPROSTENOL
     Dosage: 143.0 NG/KG, PER MIN
     Route: 042
     Dates: start: 20170522
  8. EPOPROSTENOL [Suspect]
     Active Substance: EPOPROSTENOL
     Dosage: 143.0 NG/KG, PER MIN
     Route: 042
     Dates: start: 20170609
  9. EPOPROSTENOL [Suspect]
     Active Substance: EPOPROSTENOL
     Dosage: 143.0 NG/KG, PER MIN
     Route: 042
     Dates: start: 20170913, end: 20170921
  10. EPOPROSTENOL [Suspect]
     Active Substance: EPOPROSTENOL
     Dosage: 141.8 NG/KG, PER MIN
     Route: 042
     Dates: start: 20180522
  11. EPOPROSTENOL [Suspect]
     Active Substance: EPOPROSTENOL
     Dosage: 153.2 NG/KG, PER MIN
     Route: 042
     Dates: start: 20170609
  12. EPOPROSTENOL [Suspect]
     Active Substance: EPOPROSTENOL
     Dosage: 141.7 NG/KG, PER MIN
     Route: 042
     Dates: start: 20170913, end: 20170921
  13. TORSEMIDE [Concomitant]
     Active Substance: TORSEMIDE
     Indication: Right ventricular failure
     Dates: start: 2014
  14. CLARITHROMYCIN [Concomitant]
     Active Substance: CLARITHROMYCIN
     Indication: Atypical mycobacterial infection
     Route: 048
     Dates: start: 20150114, end: 20151111
  15. MOSAPRIDE CITRATE [Concomitant]
     Active Substance: MOSAPRIDE CITRATE
     Indication: Chronic gastritis
     Dates: start: 2014, end: 20170601
  16. TRACLEER [Concomitant]
     Active Substance: BOSENTAN
     Dates: start: 20121221, end: 20160515
  17. LANSOPRAZOLE [Concomitant]
     Active Substance: LANSOPRAZOLE
     Indication: Chronic gastritis
     Route: 048
     Dates: start: 2014, end: 20150422
  18. DIETARY SUPPLEMENT\PROBIOTICS [Concomitant]
     Active Substance: DIETARY SUPPLEMENT\PROBIOTICS
     Indication: Prophylaxis
     Route: 048
     Dates: start: 20150109, end: 20160516
  19. FEBUXOSTAT [Concomitant]
     Active Substance: FEBUXOSTAT
     Indication: Hyperuricaemia
     Route: 048
     Dates: start: 2014
  20. SPIRONOLACTONE [Concomitant]
     Active Substance: SPIRONOLACTONE
     Indication: Right ventricular failure
     Route: 048
  21. TRICHLORMETHIAZIDE [Concomitant]
     Active Substance: TRICHLORMETHIAZIDE
     Indication: Right ventricular failure
     Route: 048
     Dates: start: 2012
  22. POTASSIUM GLUCONATE [Concomitant]
     Active Substance: POTASSIUM GLUCONATE
     Route: 048
     Dates: start: 20141223
  23. PRIMPERAN [Concomitant]
     Active Substance: METOCLOPRAMIDE HYDROCHLORIDE
     Dates: start: 20141226, end: 20160329
  24. LANSOPRAZOLE [Concomitant]
     Active Substance: LANSOPRAZOLE
     Indication: Chronic gastritis
     Route: 048
     Dates: start: 20150423, end: 20160508
  25. ADEMPAS [Concomitant]
     Active Substance: RIOCIGUAT
     Indication: Pulmonary arterial hypertension
     Route: 048
     Dates: start: 20160329
  26. OPSUMIT [Concomitant]
     Active Substance: MACITENTAN
     Dates: start: 20160516
  27. BIFIDOBACTERIUM SPP. [Concomitant]
     Active Substance: BIFIDOBACTERIUM SPP.
     Route: 048
     Dates: start: 20160503
  28. OXYGEN [Concomitant]
     Active Substance: OXYGEN
     Route: 055
  29. CODEINE PHOSPHATE [Concomitant]
     Active Substance: CODEINE PHOSPHATE
     Indication: Diarrhoea
     Route: 048
     Dates: start: 2014, end: 20160503
  30. TREPROSTINIL [Concomitant]
     Active Substance: TREPROSTINIL
     Dosage: 181NG/KG/MIN
     Route: 042

REACTIONS (5)
  - Autoimmune thyroiditis [Recovering/Resolving]
  - Tachyarrhythmia [Recovered/Resolved]
  - Cardiac failure [Recovered/Resolved]
  - Platelet count decreased [Recovered/Resolved]
  - Diarrhoea [Recovered/Resolved]

NARRATIVE: CASE EVENT DATE: 20160714
